FAERS Safety Report 8579628-3 (Version None)
Quarter: 2012Q3

REPORT INFORMATION
  Report Type: 
  Country: None (occurrence: None)
  Receive Date: 20120808
  Receipt Date: 20120731
  Transmission Date: 20120928
  Serious: Yes (Other)
  Sender: FDA-Public Use
  Company Number: JP-JNJFOC-20120700202

PATIENT
  Sex: Female
  Weight: 51 kg

DRUGS (6)
  1. SIMPONI [Suspect]
     Route: 058
     Dates: start: 20120220
  2. PREDNISOLONE [Concomitant]
     Indication: RHEUMATOID ARTHRITIS
     Route: 048
     Dates: start: 20071214
  3. CELEBREX [Concomitant]
     Indication: RHEUMATOID ARTHRITIS
     Dates: start: 20110221
  4. ALENDRONATE SODIUM [Concomitant]
     Route: 048
  5. SIMPONI [Suspect]
     Indication: RHEUMATOID ARTHRITIS
     Route: 058
     Dates: start: 20120123
  6. ZOLPIDEM [Concomitant]
     Route: 048

REACTIONS (1)
  - CORONARY ARTERY BYPASS [None]
